FAERS Safety Report 7838600-9 (Version None)
Quarter: 2011Q4

REPORT INFORMATION
  Report Type: 
  Country: None (occurrence: None)
  Receive Date: 20111024
  Receipt Date: 20111024
  Transmission Date: 20120403
  Serious: Yes (Life-Threatening)
  Sender: FDA-Public Use
  Company Number: US-RB-032808-11

PATIENT
  Age: 25 Year
  Sex: Male

DRUGS (2)
  1. HEROIN [Suspect]
     Indication: DRUG DEPENDENCE
     Dosage: DOSING UNKNOWN
     Route: 065
     Dates: start: 20110101
  2. SUBOXONE [Suspect]
     Indication: DRUG DEPENDENCE
     Route: 060
     Dates: start: 20110101

REACTIONS (4)
  - DRUG ABUSE [None]
  - OVERDOSE [None]
  - LOSS OF CONSCIOUSNESS [None]
  - CYANOSIS [None]
